FAERS Safety Report 9753100 (Version 1)
Quarter: 2013Q4

REPORT INFORMATION
  Report Type: Spontaneous
  Country: US (occurrence: US)
  Receive Date: 20131213
  Receipt Date: 20131213
  Transmission Date: 20140711
  Serious: No
  Sender: FDA-Public Use
  Company Number: US-GILEAD-2010-0026298

PATIENT
  Sex: Female

DRUGS (13)
  1. LETAIRIS [Suspect]
     Indication: PULMONARY ARTERIAL HYPERTENSION
     Route: 048
     Dates: start: 20090507
  2. POTASSIUM [Concomitant]
  3. BUMETANIDE [Concomitant]
  4. VIACTIV [Concomitant]
  5. CALCIUM [Concomitant]
  6. MVI [Concomitant]
  7. SINGULAIR [Concomitant]
  8. ACTONEL [Concomitant]
  9. BENICAR [Concomitant]
  10. AZATHIOPRINE [Concomitant]
  11. SPIRONOLACTONE [Concomitant]
  12. SPIRIVA [Concomitant]
  13. ADVAIR [Concomitant]

REACTIONS (2)
  - Skin exfoliation [Unknown]
  - Local swelling [Unknown]
